FAERS Safety Report 10661167 (Version 1)
Quarter: 2014Q4

REPORT INFORMATION
  Report Type: Spontaneous
  Country: US (occurrence: None)
  Receive Date: 20141216
  Receipt Date: 20141216
  Transmission Date: 20150529
  Serious: No
  Sender: FDA-Public Use
  Company Number: None

PATIENT
  Sex: Female

DRUGS (1)
  1. PREMARIN [Suspect]
     Active Substance: ESTROGENS, CONJUGATED
     Dosage: 1/2 APPLICATOR; ONCE DAILY
     Route: 067
     Dates: start: 20141211, end: 20141214

REACTIONS (2)
  - Burning sensation [None]
  - Product odour abnormal [None]

NARRATIVE: CASE EVENT DATE: 20141211
